FAERS Safety Report 10395564 (Version 1)
Quarter: 2014Q1

REPORT INFORMATION
  Report Type: Spontaneous
  Country: US (occurrence: None)
  Receive Date: 20130107
  Receipt Date: 20130107
  Transmission Date: 20141002
  Serious: No
  Sender: FDA-Public Use
  Company Number: PHHY2011US40702

PATIENT
  Age: 47 Year
  Sex: Female
  Weight: 71.2 kg

DRUGS (1)
  1. GILENYA (FTY) CAPSULE [Suspect]
     Indication: MULTIPLE SCLEROSIS
     Route: 048
     Dates: start: 20110412

REACTIONS (4)
  - Throat irritation [None]
  - Back pain [None]
  - Dizziness [None]
  - Headache [None]
